FAERS Safety Report 5330759-0 (Version None)
Quarter: 2007Q2

REPORT INFORMATION
  Report Type: 
  Country: None (occurrence: None)
  Receive Date: 20070522
  Receipt Date: 20070509
  Transmission Date: 20071010
  Serious: Yes (Hospitalization)
  Sender: FDA-Public Use
  Company Number: GB-SHR-GB-2007-010409

PATIENT
  Age: 86 Year
  Sex: Female

DRUGS (3)
  1. SOTALOL HYDROCHLORIDE [Suspect]
     Indication: CARDIOVERSION
     Dosage: 40 MG, 1X/DAY
     Route: 048
  2. DIGOXIN [Concomitant]
     Indication: ATRIAL FIBRILLATION
     Dosage: 625 A?G, UNK
  3. METOPROLOL SUCCINATE [Concomitant]
     Indication: ATRIAL FIBRILLATION
     Dosage: 137.5 MG, UNK

REACTIONS (3)
  - ELECTROCARDIOGRAM QT PROLONGED [None]
  - ELECTROCARDIOGRAM T WAVE INVERSION [None]
  - TORSADE DE POINTES [None]
